FAERS Safety Report 9818765 (Version 1)
Quarter: 2014Q1

REPORT INFORMATION
  Report Type: Spontaneous
  Country: JP (occurrence: JP)
  Receive Date: 20140115
  Receipt Date: 20140115
  Transmission Date: 20141002
  Serious: Yes (Hospitalization)
  Sender: FDA-Public Use
  Company Number: JP-BAXTER-2014BAX001027

PATIENT
  Sex: Female

DRUGS (3)
  1. DIANEAL-N PD-2 1.5 PD SOLUTION [Suspect]
     Indication: DIABETES MELLITUS
     Route: 033
     Dates: start: 20120312, end: 20140106
  2. DIANEAL-N PD-2 1.5 PD SOLUTION [Suspect]
     Route: 033
     Dates: start: 20140106
  3. EXTRANEAL PD SOLUTION [Suspect]
     Indication: DIABETES MELLITUS
     Route: 033
     Dates: start: 20120312

REACTIONS (2)
  - Pneumonia [Not Recovered/Not Resolved]
  - Weight increased [Unknown]
